FAERS Safety Report 6872188-4 (Version None)
Quarter: 2010Q2

REPORT INFORMATION
  Report Type: 
  Country: None (occurrence: None)
  Receive Date: 20100528
  Receipt Date: 20100208
  Transmission Date: 20101027
  Serious: No
  Sender: FDA-Public Use
  Company Number: 2010017027

PATIENT
  Age: 54 Year
  Sex: Female
  Weight: 77.1 kg

DRUGS (3)
  1. TOVIAZ (FESOTERODINE) MODIFIED-RELEASE TABLET [Suspect]
     Indication: HYPERTONIC BLADDER
     Dosage: 4 MG, 1X/DAY DAILY DOSE: 4 MG, ORAL
     Route: 048
     Dates: start: 20100204
  2. TOVIAZ (FESOTERODINE) MODIFIED-RELEASE TABLET [Suspect]
     Indication: MICTURITION URGENCY
     Dosage: 4 MG, 1X/DAY DAILY DOSE: 4 MG, ORAL
     Route: 048
     Dates: start: 20100204
  3. TOVIAZ (FESOTERODINE) MODIFIED-RELEASE TABLET [Suspect]
     Indication: URINARY INCONTINENCE
     Dosage: 4 MG, 1X/DAY DAILY DOSE: 4 MG, ORAL
     Route: 048
     Dates: start: 20100204

REACTIONS (2)
  - DIARRHOEA [None]
  - NAUSEA [None]
